FAERS Safety Report 5338002-3 (Version None)
Quarter: 2007Q2

REPORT INFORMATION
  Report Type: 
  Country: None (occurrence: None)
  Receive Date: 20070530
  Receipt Date: 20070521
  Transmission Date: 20071010
  Serious: Yes (Other)
  Sender: FDA-Public Use
  Company Number: US-JNJFOC-20070505536

PATIENT
  Age: 58 Year
  Sex: Female

DRUGS (2)
  1. DURAGESIC-100 [Suspect]
     Indication: PAIN
     Route: 062
  2. FENTANYL TRANSDERMAL SYSTEM [Concomitant]
     Indication: PAIN
     Route: 062

REACTIONS (4)
  - DRUG WITHDRAWAL SYNDROME [None]
  - HOSTILITY [None]
  - VIOLENT IDEATION [None]
  - WRONG TECHNIQUE IN DRUG USAGE PROCESS [None]
